FAERS Safety Report 14020157 (Version 3)
Quarter: 2018Q2

REPORT INFORMATION
  Report Type: Spontaneous
  Country: US (occurrence: US)
  Receive Date: 20170928
  Receipt Date: 20180420
  Transmission Date: 20180711
  Serious: Yes (Death, Hospitalization)
  Sender: FDA-Public Use
  Company Number: US-JNJFOC-20170928210

PATIENT
  Age: 48 Year
  Sex: Female

DRUGS (7)
  1. ADVAIR HFA [Concomitant]
     Active Substance: FLUTICASONE PROPIONATE\SALMETEROL XINAFOATE
     Route: 065
     Dates: start: 2014, end: 20160909
  2. ALBUTEROL. [Concomitant]
     Active Substance: ALBUTEROL
     Route: 065
     Dates: start: 2016, end: 20160909
  3. CARVEDILOL. [Concomitant]
     Active Substance: CARVEDILOL
     Route: 065
     Dates: start: 2013, end: 20160909
  4. FOLIC ACID. [Concomitant]
     Active Substance: FOLIC ACID
     Route: 065
  5. XARELTO [Suspect]
     Active Substance: RIVAROXABAN
     Indication: PULMONARY EMBOLISM
     Dosage: 15 MG AND 20MG
     Route: 048
     Dates: start: 20140730, end: 20160909
  6. BENZONATATE. [Concomitant]
     Active Substance: BENZONATATE
     Route: 065
     Dates: start: 2014, end: 20160909
  7. VITAMIN B-6 [Concomitant]
     Active Substance: PYRIDOXINE
     Route: 065

REACTIONS (3)
  - Haemoptysis [Fatal]
  - Pulmonary embolism [Fatal]
  - Coagulopathy [Fatal]

NARRATIVE: CASE EVENT DATE: 20160909
